FAERS Safety Report 12844982 (Version 2)
Quarter: 2020Q2

REPORT INFORMATION
  Report Type: Spontaneous
  Country: US (occurrence: US)
  Receive Date: 20161013
  Receipt Date: 20200421
  Transmission Date: 20200713
  Serious: Yes (Hospitalization, Other)
  Sender: FDA-Public Use
  Company Number: US-009507513-1610USA005392

PATIENT
  Sex: Male
  Weight: 90.7 kg

DRUGS (1)
  1. JANUMET [Suspect]
     Active Substance: METFORMIN HYDROCHLORIDE\SITAGLIPTIN PHOSPHATE
     Indication: TYPE 2 DIABETES MELLITUS
     Dosage: 1 TABLET (100/1000 MILLIGRAM), BID
     Route: 048
     Dates: start: 201001, end: 201102

REACTIONS (12)
  - Type 1 diabetes mellitus [Not Recovered/Not Resolved]
  - Haemangioma [Unknown]
  - Benign prostatic hyperplasia [Unknown]
  - Cholelithiasis [Unknown]
  - Hepatic steatosis [Unknown]
  - Pancreatic cyst [Unknown]
  - Umbilical hernia [Unknown]
  - Intraductal papillary-mucinous carcinoma of pancreas [Unknown]
  - Pancreatitis acute [Recovered/Resolved]
  - Renal cyst [Unknown]
  - Gastrooesophageal reflux disease [Unknown]
  - Muscle fatigue [Not Recovered/Not Resolved]

NARRATIVE: CASE EVENT DATE: 20141119
